FAERS Safety Report 23645482 (Version 1)
Quarter: 2024Q1

REPORT INFORMATION
  Report Type: Spontaneous
  Country: IT (occurrence: IT)
  Receive Date: 20240319
  Receipt Date: 20240319
  Transmission Date: 20240410
  Serious: Yes (Hospitalization)
  Sender: FDA-Public Use
  Company Number: None

PATIENT
  Age: 75 Year
  Sex: Female
  Weight: 53 kg

DRUGS (2)
  1. GEMCITABINE [Suspect]
     Active Substance: GEMCITABINE
     Indication: Non-Hodgkin^s lymphoma
     Dosage: ON 28.11.2023 ADMINISTERED GEMCITABINE 1550 MG ON 19.12.2023?ADMINISTERED GEMCITABINE 1034 MG
     Dates: start: 20231128, end: 20231219
  2. OXALIPLATIN [Suspect]
     Active Substance: OXALIPLATIN
     Indication: Non-Hodgkin^s lymphoma
     Dosage: ON 28.11.2023 ADMINISTERED OXALIPLATIN 100 MG ON 19.12.2023?ADMINISTERED OXALIPLATIN 100 MG
     Dates: start: 20231128, end: 20231219

REACTIONS (3)
  - Hypercalcaemia [Recovered/Resolved]
  - Toxicity to various agents [Unknown]
  - COVID-19 [Recovered/Resolved]

NARRATIVE: CASE EVENT DATE: 20240108
